FAERS Safety Report 6065655-7 (Version None)
Quarter: 2009Q1

REPORT INFORMATION
  Report Type: 
  Country: None (occurrence: None)
  Receive Date: 20090130
  Receipt Date: 20090120
  Transmission Date: 20090719
  Serious: Yes (Hospitalization)
  Sender: FDA-Public Use
  Company Number: 2009PL000026

PATIENT
  Age: 33 Year
  Sex: Female

DRUGS (13)
  1. MERCAPTOPURINE [Suspect]
     Indication: RETROPERITONEAL FIBROSIS
     Dosage: 100 MG; QD
  2. TAMOXIFEN CITRATE [Suspect]
     Indication: DESMOID TUMOUR
  3. TAMOXIFEN CITRATE [Suspect]
     Indication: FIBROMATOSIS
  4. SPIRONOLACTONE [Concomitant]
  5. FUROSEMIDE /00032601/ [Concomitant]
  6. NADOLOL [Concomitant]
  7. PARACETAMOL [Concomitant]
  8. MORPHINE [Concomitant]
  9. METOCLOPRAMIDE [Concomitant]
  10. OMEPRAZOLE [Concomitant]
  11. TEMAZEPAM [Concomitant]
  12. FLUOXETINE HCL [Concomitant]
  13. PREDNISONE [Concomitant]

REACTIONS (13)
  - ABDOMINAL PAIN [None]
  - ALANINE AMINOTRANSFERASE INCREASED [None]
  - ASCITES [None]
  - ASPARTATE AMINOTRANSFERASE INCREASED [None]
  - BLOOD ALBUMIN DECREASED [None]
  - BLOOD ALKALINE PHOSPHATASE INCREASED [None]
  - DISEASE PROGRESSION [None]
  - DRUG TOXICITY [None]
  - GAMMA-GLUTAMYLTRANSFERASE INCREASED [None]
  - JAUNDICE [None]
  - LIVER FUNCTION TEST ABNORMAL [None]
  - OEDEMA PERIPHERAL [None]
  - RETROPERITONEAL FIBROSIS [None]
